FAERS Safety Report 8351514 (Version 6)
Quarter: 2012Q4

REPORT INFORMATION
  Report Type: 
  Country: US (occurrence: US)
  Receive Date: 20120124
  Receipt Date: 20121207
  Transmission Date: 20130627
  Serious: Yes (Hospitalization, Other)
  Sender: FDA-Public Use
  Company Number: US-009507513-1201USA02841

PATIENT

DRUGS (7)
  1. FOSAMAX [Suspect]
     Indication: OSTEOPOROSIS
     Route: 048
     Dates: start: 1996, end: 200308
  2. FOSAMAX [Suspect]
     Route: 048
     Dates: start: 20090314, end: 201002
  3. HORMONES (UNSPECIFIED) [Concomitant]
     Route: 048
     Dates: start: 1968
  4. CALCIUM (UNSPECIFIED) (+) VITAMIN D (UNSPECIFIED) [Concomitant]
     Dosage: UNK UNK, qd
     Route: 048
     Dates: start: 1996
  5. PREMARIN [Concomitant]
     Dosage: 0.625 mg, qd
     Route: 048
     Dates: start: 1988
  6. FOSAMAX [Suspect]
     Dosage: 70 mg, QW
     Route: 048
  7. ACTONEL [Suspect]
     Dates: start: 1996

REACTIONS (48)
  - Pneumonia [Unknown]
  - Low turnover osteopathy [Unknown]
  - Femur fracture [Recovering/Resolving]
  - Intervertebral disc degeneration [Unknown]
  - Hypercholesterolaemia [Unknown]
  - Foot fracture [Recovering/Resolving]
  - Cardiac disorder [Unknown]
  - Meniere^s disease [Unknown]
  - Impaired healing [Recovering/Resolving]
  - Bursitis [Unknown]
  - Paraesthesia [Unknown]
  - Carpal tunnel syndrome [Unknown]
  - Fibrosis [Unknown]
  - Tenosynovitis [Unknown]
  - Acquired claw toe [Unknown]
  - Urethral syndrome [Recovering/Resolving]
  - Osteopenia [Unknown]
  - Blood potassium decreased [Unknown]
  - Contusion [Recovering/Resolving]
  - Gamma-glutamyltransferase increased [Unknown]
  - Osteoarthritis [Unknown]
  - Intervertebral disc degeneration [Unknown]
  - Vitreous detachment [Unknown]
  - Angioedema [Unknown]
  - Deafness [Recovering/Resolving]
  - Atrial fibrillation [Unknown]
  - Labyrinthitis [Unknown]
  - Rotator cuff syndrome [Recovering/Resolving]
  - Procedural nausea [Recovered/Resolved]
  - Procedural vomiting [Recovered/Resolved]
  - Bursitis [Unknown]
  - Osteoarthritis [Unknown]
  - Osteoma [Unknown]
  - Bone disorder [Unknown]
  - Asthma [Unknown]
  - Hypertension [Unknown]
  - Cardiac murmur [Unknown]
  - Gastrooesophageal reflux disease [Unknown]
  - Transfusion [Unknown]
  - Cystitis [Unknown]
  - Lung disorder [Unknown]
  - Patellofemoral pain syndrome [Recovered/Resolved]
  - Drug ineffective [Unknown]
  - Bursitis [Unknown]
  - Tendonitis [Unknown]
  - Temporomandibular joint syndrome [Unknown]
  - Morton^s neuroma [Unknown]
  - Foot deformity [Unknown]
